FAERS Safety Report 21196748 (Version 1)
Quarter: 2022Q3

REPORT INFORMATION
  Report Type: Report from Study
  Country: US (occurrence: US)
  Receive Date: 20220810
  Receipt Date: 20220810
  Transmission Date: 20221026
  Serious: Yes (Hospitalization, Other)
  Sender: FDA-Public Use
  Company Number: US-JAZZ-2021-US-021970

PATIENT
  Age: 55 Year
  Sex: Male
  Weight: 73.7 kg

DRUGS (1)
  1. CYTARABINE\DAUNORUBICIN [Suspect]
     Active Substance: CYTARABINE\DAUNORUBICIN
     Indication: Acute myeloid leukaemia
     Dosage: 84.04 MILLIGRAM, DAYS 1,3,5 Q2WK
     Route: 042
     Dates: start: 20211116, end: 20211120

REACTIONS (2)
  - Tonsillitis [Unknown]
  - Diverticulitis [Unknown]

NARRATIVE: CASE EVENT DATE: 20211201
